FAERS Safety Report 8794044 (Version 2)
Quarter: 2012Q4

REPORT INFORMATION
  Report Type: 
  Country: US (occurrence: US)
  Receive Date: 20120918
  Receipt Date: 20121002
  Transmission Date: 20130627
  Serious: No
  Sender: FDA-Public Use
  Company Number: US-BIOGENIDEC-2012BI037014

PATIENT
  Sex: Female

DRUGS (1)
  1. TYSABRI [Suspect]
     Indication: MULTIPLE SCLEROSIS
     Route: 042
     Dates: start: 20060914

REACTIONS (6)
  - Urinary incontinence [Not Recovered/Not Resolved]
  - Urinary retention [Not Recovered/Not Resolved]
  - Fear [Unknown]
  - Urinary tract infection [Unknown]
  - Pruritus [Recovered/Resolved]
  - Drug ineffective [Not Recovered/Not Resolved]
